FAERS Safety Report 6491861-3 (Version None)
Quarter: 2009Q4

REPORT INFORMATION
  Report Type: 
  Country: None (occurrence: None)
  Receive Date: 20091125
  Receipt Date: 20090825
  Transmission Date: 20100525
  Serious: Yes (Other)
  Sender: FDA-Public Use
  Company Number: 2009BH012225

PATIENT
  Age: 68 Year
  Sex: Female

DRUGS (15)
  1. DIANEAL [Suspect]
     Indication: PERITONEAL DIALYSIS
     Dosage: 12.5 L; EVERY DAY; IP
     Route: 033
     Dates: start: 20090518
  2. HEPARIN [Concomitant]
  3. DOCUSATE SODIUM [Concomitant]
  4. ASPIRIN [Concomitant]
  5. FERRIC SODIUM GLUCONATE [Concomitant]
  6. COMPLEX [Concomitant]
  7. HUMULIN 70/30 [Concomitant]
  8. HYDRALAZINE HYDROCLORIDE [Concomitant]
  9. LISINOPRIL [Concomitant]
  10. LOPRESSOR [Concomitant]
  11. AMLODIPINE BESYLATE [Concomitant]
  12. PHOSLO [Concomitant]
  13. RECOMBIVAX HB [Concomitant]
     Indication: PERITONEAL DIALYSIS
     Dosage: 12.5 L; EVERY DAY; IP
     Route: 033
     Dates: start: 20090518
  14. ZEMPLAR [Concomitant]
  15. SIMVASTATIN [Concomitant]

REACTIONS (2)
  - PERITONEAL DIALYSIS COMPLICATION [None]
  - PERITONITIS BACTERIAL [None]
